FAERS Safety Report 10187221 (Version 2)
Quarter: 2014Q2

REPORT INFORMATION
  Report Type: Spontaneous
  Country: US (occurrence: US)
  Receive Date: 20140522
  Receipt Date: 20140522
  Transmission Date: 20141212
  Serious: Yes (Hospitalization)
  Sender: FDA-Public Use
  Company Number: PHEH2014US006717

PATIENT
  Sex: Male
  Weight: 78 kg

DRUGS (16)
  1. SANDOSTATIN [Suspect]
     Dosage: 200 UG, BID
     Route: 058
     Dates: start: 20140314, end: 20140327
  2. ANTIHYPERTENSIVE DRUGS [Suspect]
     Dosage: UNK UKN, UNK
  3. POTASSIUM CHLORIDE [Concomitant]
     Dosage: UNK UKN, UNK
  4. REVATIO [Concomitant]
     Dosage: UNK UKN, UNK
  5. SPIRONOLACTONE [Concomitant]
     Dosage: UNK UKN, UNK
  6. TEMAZEPAM [Concomitant]
     Dosage: UNK UKN, UNK
  7. VOLTAREN DOLO//DICLOFENAC DIETHYLAMINE [Concomitant]
     Dosage: UNK UKN, UNK
  8. ZOFRAN [Concomitant]
     Dosage: UNK UKN, UNK
  9. PRADAXA [Concomitant]
     Dosage: UNK UKN, UNK
  10. AMLODIPINE [Concomitant]
     Dosage: UNK UKN, UNK
  11. ATENOLOL [Concomitant]
     Dosage: UNK UKN, UNK
  12. DIAZEPAM [Concomitant]
     Dosage: UNK UKN, UNK
  13. FIORICET [Concomitant]
     Dosage: UNK UKN, UNK
  14. GEMFIBROZIL [Concomitant]
     Dosage: UNK UKN, UNK
  15. LISINOPRIL [Concomitant]
     Dosage: UNK UKN, UNK
  16. FISH OIL [Concomitant]
     Dosage: UNK UKN, UNK

REACTIONS (1)
  - Hyponatraemia [Recovered/Resolved]
